FAERS Safety Report 24036990 (Version 1)
Quarter: 2024Q3

REPORT INFORMATION
  Report Type: Spontaneous
  Country: US (occurrence: US)
  Receive Date: 20240701
  Receipt Date: 20240701
  Transmission Date: 20241016
  Serious: No
  Sender: BRISTOL MYERS SQUIBB
  Company Number: US-BRISTOL-MYERS SQUIBB COMPANY-2024-104904

PATIENT
  Age: 66 Year
  Sex: Female

DRUGS (1)
  1. REVLIMID [Suspect]
     Active Substance: LENALIDOMIDE
     Indication: Monoclonal gammopathy
     Route: 048
     Dates: start: 202405

REACTIONS (5)
  - Ageusia [Not Recovered/Not Resolved]
  - Oral pain [Not Recovered/Not Resolved]
  - Skin discolouration [Not Recovered/Not Resolved]
  - Taste disorder [Not Recovered/Not Resolved]
  - Off label use [Unknown]

NARRATIVE: CASE EVENT DATE: 20240501
